FAERS Safety Report 11059677 (Version 1)
Quarter: 2015Q2

REPORT INFORMATION
  Report Type: Spontaneous
  Country: US (occurrence: US)
  Receive Date: 20150423
  Receipt Date: 20150423
  Transmission Date: 20150821
  Serious: No
  Sender: FDA-Public Use
  Company Number: US-009507513-1504USA020543

PATIENT
  Weight: 76.19 kg

DRUGS (1)
  1. NEXPLANON [Suspect]
     Active Substance: ETONOGESTREL
     Dosage: DOSE/ FREQUENCY: 1 ROD/ 3 YEARS
     Route: 059
     Dates: start: 20150408

REACTIONS (3)
  - No adverse event [Unknown]
  - Device difficult to use [Unknown]
  - Product quality issue [Unknown]

NARRATIVE: CASE EVENT DATE: 20150408
